FAERS Safety Report 16137779 (Version 2)
Quarter: 2019Q2

REPORT INFORMATION
  Report Type: Report from Study
  Country: None (occurrence: US)
  Receive Date: 20190330
  Receipt Date: 20190412
  Transmission Date: 20190711
  Serious: Yes (Hospitalization)
  Sender: FDA-Public Use
  Company Number: US-ABBVIE-19K-163-2724317-00

PATIENT
  Age: 15 Year
  Sex: Female

DRUGS (5)
  1. POTASSIUM [Concomitant]
     Active Substance: POTASSIUM
     Indication: PRODUCT USED FOR UNKNOWN INDICATION
  2. HUMIRA [Suspect]
     Active Substance: ADALIMUMAB
     Indication: CROHN^S DISEASE
     Route: 058
     Dates: start: 201808
  3. LORATADINE. [Concomitant]
     Active Substance: LORATADINE
     Indication: SEASONAL ALLERGY
  4. ALBUTEROL. [Concomitant]
     Active Substance: ALBUTEROL
     Indication: SEASONAL ALLERGY
  5. VITAMIN D2 [Concomitant]
     Active Substance: ERGOCALCIFEROL
     Indication: PRODUCT USED FOR UNKNOWN INDICATION

REACTIONS (16)
  - Haematochezia [Recovering/Resolving]
  - Crohn^s disease [Recovering/Resolving]
  - Pancreatitis [Recovering/Resolving]
  - Drug ineffective [Not Recovered/Not Resolved]
  - Hyperhidrosis [Recovering/Resolving]
  - Pain [Unknown]
  - Dehydration [Recovered/Resolved]
  - Blood iron decreased [Recovering/Resolving]
  - Hepatic enzyme increased [Recovering/Resolving]
  - Dehydration [Recovered/Resolved]
  - Colitis [Recovering/Resolving]
  - Constipation [Recovering/Resolving]
  - Infectious mononucleosis [Recovering/Resolving]
  - Dermatitis [Recovering/Resolving]
  - Folliculitis [Recovered/Resolved]
  - Diarrhoea [Recovering/Resolving]

NARRATIVE: CASE EVENT DATE: 2018
